FAERS Safety Report 7318904-9 (Version None)
Quarter: 2011Q1

REPORT INFORMATION
  Report Type: 
  Country: None (occurrence: None)
  Receive Date: 20110228
  Receipt Date: 20110216
  Transmission Date: 20110831
  Serious: Yes (Hospitalization, Other)
  Sender: FDA-Public Use
  Company Number: US-ELI_LILLY_AND_COMPANY-US201012003029

PATIENT
  Sex: Female
  Weight: 68.027 kg

DRUGS (14)
  1. PREDNISONE [Concomitant]
  2. VITAMIN B-12 [Concomitant]
     Dosage: UNK, OTHER
  3. ACEON [Concomitant]
  4. DIGOXIN [Concomitant]
     Dosage: UNK, UNKNOWN
     Route: 065
  5. POTASSIUM [Concomitant]
  6. COUMADIN [Concomitant]
  7. LOMOTIL [Concomitant]
  8. COREG [Concomitant]
  9. LASIX [Concomitant]
  10. VITAMIN D [Concomitant]
     Dosage: UNK, OTHER
  11. PREVACID [Concomitant]
  12. FORTEO [Suspect]
     Indication: OSTEOPOROSIS
     Dosage: 20 UG, DAILY (1/D)
     Route: 058
     Dates: start: 20100805
  13. DIGOXIN [Concomitant]
  14. KLOR-CON [Concomitant]
     Dosage: UNK, UNKNOWN
     Route: 065

REACTIONS (2)
  - FALL [None]
  - FEMUR FRACTURE [None]
